FAERS Safety Report 4790171-X (Version None)
Quarter: 2005Q4

REPORT INFORMATION
  Report Type: 
  Country: None (occurrence: None)
  Receive Date: 20051005
  Receipt Date: 20051005
  Transmission Date: 20060501
  Serious: Yes (Life-Threatening, Hospitalization)
  Sender: FDA-Public Use
  Company Number: None

PATIENT
  Sex: Female

DRUGS (2)
  1. QUINAPRIL [Suspect]
     Indication: HYPERTENSION
     Dosage: DAILY REGIMEN
  2. PHENYTOIN [Concomitant]

REACTIONS (4)
  - ANGIONEUROTIC OEDEMA [None]
  - DYSPNOEA [None]
  - OEDEMA MOUTH [None]
  - PHARYNGEAL OEDEMA [None]
